FAERS Safety Report 7123666-4 (Version None)
Quarter: 2010Q4

REPORT INFORMATION
  Report Type: 
  Country: None (occurrence: None)
  Receive Date: 20101125
  Receipt Date: 20100713
  Transmission Date: 20110411
  Serious: Yes (Other)
  Sender: FDA-Public Use
  Company Number: ZA-AMGEN-KDL440963

PATIENT

DRUGS (3)
  1. NEUPOGEN [Suspect]
     Indication: NEUTROPENIA
     Dosage: UNK UNK, UNK
     Dates: start: 20100701
  2. PEGINTERFERON ALFA-2A [Suspect]
     Dosage: 135 A?G, UNK
     Dates: start: 20100224
  3. RIBAVIRIN [Suspect]
     Dosage: UNK UNK, UNK
     Dates: start: 20100224

REACTIONS (7)
  - ANAEMIA [None]
  - COUGH [None]
  - DEPRESSION [None]
  - EYE IRRITATION [None]
  - FATIGUE [None]
  - NEUTROPENIA [None]
  - SWOLLEN TONGUE [None]
